FAERS Safety Report 20299913 (Version 1)
Quarter: 2022Q1

REPORT INFORMATION
  Report Type: Spontaneous
  Country: US (occurrence: None)
  Receive Date: 20220105
  Receipt Date: 20220105
  Transmission Date: 20220423
  Serious: Yes (Hospitalization)
  Sender: FDA-Public Use
  Company Number: None

PATIENT
  Sex: Female

DRUGS (19)
  1. AMBRISENTAN [Suspect]
     Active Substance: AMBRISENTAN
  2. AMBRISENTAN TAB [Concomitant]
  3. CEFDINIR SUS [Concomitant]
  4. CIPROFLOXACN SOL [Concomitant]
  5. FLUTICASONE SPR [Concomitant]
  6. HC VALERATE OIN [Concomitant]
  7. IPRATROPIUM SOL 0.02% INH [Concomitant]
  8. MULTI-VIT/FL CHW [Concomitant]
  9. NASONEX [Concomitant]
  10. PERMETHRIN CRE 5% [Concomitant]
  11. POLY-VIT/FL DRO [Concomitant]
  12. RANITIDINE SYP [Concomitant]
  13. REMODULIN INJ [Concomitant]
  14. SINGULAIR CHW [Concomitant]
  15. TADALAFIL [Concomitant]
  16. TADALAFIL [Concomitant]
     Active Substance: TADALAFIL
  17. TAMIFLU SUS [Concomitant]
  18. TRIAMCINOLONE ACETONIDE [Concomitant]
  19. XOPENEX NEB [Concomitant]

REACTIONS (1)
  - Ovarian cyst ruptured [None]
